FAERS Safety Report 5765231-7 (Version None)
Quarter: 2008Q2

REPORT INFORMATION
  Report Type: 
  Country: None (occurrence: None)
  Receive Date: 20080602
  Receipt Date: 20080208
  Transmission Date: 20081010
  Serious: No
  Sender: FDA-Public Use
  Company Number: PHEH2008US01606

PATIENT
  Age: 64 Year
  Sex: Female

DRUGS (3)
  1. TEKTURNA [Suspect]
     Dates: end: 20080207
  2. BENICAR [Concomitant]
  3. SPIRONOLACTONE [Concomitant]

REACTIONS (3)
  - HYPOAESTHESIA FACIAL [None]
  - HYPOAESTHESIA ORAL [None]
  - OEDEMA PERIPHERAL [None]
